FAERS Safety Report 6147098-0 (Version None)
Quarter: 2009Q2

REPORT INFORMATION
  Report Type: 
  Country: None (occurrence: None)
  Receive Date: 20090407
  Receipt Date: 20090331
  Transmission Date: 20091009
  Serious: Yes (Life-Threatening, Hospitalization)
  Sender: FDA-Public Use
  Company Number: CA-ALLERGAN-0815295US

PATIENT
  Sex: Female
  Weight: 43.084 kg

DRUGS (8)
  1. BOTOX [Suspect]
     Indication: HYPERTONIC BLADDER
     Dosage: 300 UNITS, SINGLE
     Dates: start: 20081003, end: 20081003
  2. BOTOX [Suspect]
     Indication: MUSCLE SPASMS
     Dosage: UNK, SINGLE
     Dates: start: 20070101, end: 20070101
  3. RAMIPRIL [Concomitant]
     Dosage: 5 MG, BID
  4. RAMIPRIL [Concomitant]
     Dosage: 5 MG, QD
  5. ATENOLOL [Concomitant]
     Dosage: 25 MG, BID
  6. ATENOLOL [Concomitant]
     Dosage: 25 MG, QD
  7. CITALOPRAM HYDROBROMIDE [Concomitant]
     Dosage: 10 MG, QD
  8. ZOPICLONE [Concomitant]
     Dosage: 7.5 MG, QHS

REACTIONS (7)
  - AREFLEXIA [None]
  - CHOKING [None]
  - CYANOSIS [None]
  - DEPRESSED LEVEL OF CONSCIOUSNESS [None]
  - FALL [None]
  - HYPOTENSION [None]
  - UNRESPONSIVE TO STIMULI [None]
